FAERS Safety Report 7756817-9 (Version None)
Quarter: 2011Q3

REPORT INFORMATION
  Report Type: 
  Country: None (occurrence: None)
  Receive Date: 20110916
  Receipt Date: 20110913
  Transmission Date: 20111222
  Serious: Yes (Death, Disabling, Other)
  Sender: FDA-Public Use
  Company Number: PHHY2011GB82111

PATIENT
  Age: 31 Year
  Sex: Male

DRUGS (2)
  1. FLUOXETINE [Suspect]
     Dosage: 40 MG, QD
  2. FLUOXETINE [Suspect]
     Indication: MYASTHENIC SYNDROME
     Dosage: 20 MG, QD

REACTIONS (4)
  - ACCIDENTAL DEATH [None]
  - SEROTONIN SYNDROME [None]
  - HYPOTENSION [None]
  - DRUG INTOLERANCE [None]
